FAERS Safety Report 8975884 (Version 2)
Quarter: 2012Q4

REPORT INFORMATION
  Report Type: Report from Study
  Country: CA (occurrence: CA)
  Receive Date: 20121219
  Receipt Date: 20121225
  Transmission Date: 20130627
  Serious: Yes (Life-Threatening, Hospitalization)
  Sender: FDA-Public Use
  Company Number: CA-JNJFOC-20120708751

PATIENT
  Age: 47 Year
  Sex: Male
  Weight: 84.82 kg

DRUGS (2)
  1. STELARA [Suspect]
     Indication: PSORIASIS
     Route: 058
     Dates: start: 20110831
  2. STELARA [Suspect]
     Indication: PSORIASIS
     Route: 058
     Dates: start: 20120607

REACTIONS (2)
  - Acute myocardial infarction [Recovered/Resolved with Sequelae]
  - Cardiogenic shock [Recovered/Resolved]
